FAERS Safety Report 7861413-9 (Version None)
Quarter: 2011Q4

REPORT INFORMATION
  Report Type: 
  Country: None (occurrence: None)
  Receive Date: 20111027
  Receipt Date: 20111021
  Transmission Date: 20120403
  Serious: Yes (Hospitalization)
  Sender: FDA-Public Use
  Company Number: IT-PFIZER INC-2011257582

PATIENT
  Age: 52 Year
  Sex: Male
  Weight: 114 kg

DRUGS (7)
  1. DEURSIL [Concomitant]
     Dosage: UNK
     Dates: start: 20060101
  2. LANSOPRAZOLE [Concomitant]
     Dosage: UNK
     Dates: start: 20110601
  3. LASIX [Concomitant]
     Dosage: UNK
     Dates: start: 20110404
  4. PANTOPRAZOLE SODIUM [Concomitant]
     Dosage: UNK
     Dates: start: 20110613, end: 20110601
  5. BLINDED THERAPY [Suspect]
     Indication: PULMONARY HYPERTENSION
     Dosage: UNK
     Route: 048
     Dates: start: 20110616, end: 20110629
  6. KANRENOL [Concomitant]
     Dosage: UNK
     Dates: start: 20090701
  7. SILDENAFIL CITRATE [Suspect]
     Indication: PULMONARY HYPERTENSION
     Dosage: 60 MG, UNK
     Route: 048
     Dates: start: 20090201

REACTIONS (1)
  - ERYSIPELAS [None]
